FAERS Safety Report 15705688 (Version 1)
Quarter: 2018Q4

REPORT INFORMATION
  Report Type: Spontaneous
  Country: PT (occurrence: PT)
  Receive Date: 20181210
  Receipt Date: 20181210
  Transmission Date: 20190205
  Serious: Yes (Hospitalization, Other)
  Sender: FDA-Public Use
  Company Number: PT-TASMAN PHARMA, INC.-2018TSM00188

PATIENT
  Age: 42 Year
  Sex: Male

DRUGS (1)
  1. CLOZAPINE. [Suspect]
     Active Substance: CLOZAPINE
     Indication: SCHIZOPHRENIA
     Dosage: 600 MG, 1X/DAY
     Route: 065

REACTIONS (5)
  - Renal failure [Unknown]
  - Intestinal perforation [Recovered/Resolved]
  - Respiratory tract infection [Unknown]
  - Peritonitis [Unknown]
  - Abdominal abscess [Unknown]
